FAERS Safety Report 9069865 (Version 1)
Quarter: 2013Q1

REPORT INFORMATION
  Report Type: Spontaneous
  Country: US (occurrence: US)
  Receive Date: 20130215
  Receipt Date: 20130215
  Transmission Date: 20140127
  Serious: Yes (Hospitalization)
  Sender: FDA-Public Use
  Company Number: CHPA2013US001075

PATIENT
  Age: 85 Year
  Sex: Male

DRUGS (3)
  1. PERDIEM [Suspect]
     Indication: BOWEL MOVEMENT IRREGULARITY
     Dosage: UNK, UNK
     Route: 048
     Dates: start: 1989
  2. PERDIEM [Suspect]
     Indication: BOWEL MOVEMENT IRREGULARITY
     Dosage: 1-2 PILLS, ONCE DAILY
     Route: 048
  3. PERDIEM [Suspect]
     Dosage: 1-2 PILLS, ONCE DAILY
     Route: 048
     Dates: start: 20130110

REACTIONS (3)
  - Vertigo [Recovered/Resolved]
  - Bowel movement irregularity [Recovered/Resolved]
  - Disease recurrence [Recovered/Resolved]
